FAERS Safety Report 12353905 (Version 1)
Quarter: 2016Q2

REPORT INFORMATION
  Report Type: Spontaneous
  Country: JP (occurrence: JP)
  Receive Date: 20160511
  Receipt Date: 20160511
  Transmission Date: 20160815
  Serious: Yes (Hospitalization, Other)
  Sender: FDA-Public Use
  Company Number: JP-PAR PHARMACEUTICAL COMPANIES-2016SCPR015438

PATIENT

DRUGS (3)
  1. VALPROIC ACID. [Suspect]
     Active Substance: VALPROIC ACID
     Indication: DEMENTIA ALZHEIMER^S TYPE
     Dosage: UNK UNK, UNKNOWN
     Route: 065
  2. MEMANTINE. [Concomitant]
     Active Substance: MEMANTINE
     Indication: DEMENTIA ALZHEIMER^S TYPE
     Dosage: UNK, UNKNOWN
     Route: 065
  3. FLUVOXAMINE MALEATE. [Suspect]
     Active Substance: FLUVOXAMINE MALEATE
     Indication: DEMENTIA ALZHEIMER^S TYPE
     Dosage: UNK UNK, UNKNOWN
     Route: 065

REACTIONS (5)
  - Decubitus ulcer [Recovered/Resolved]
  - Akinesia [Unknown]
  - Dehydration [Recovered/Resolved]
  - Product use issue [Unknown]
  - Blood creatine phosphokinase increased [Unknown]
